FAERS Safety Report 8999433 (Version 2)
Quarter: 2013Q2

REPORT INFORMATION
  Report Type: Report from Study
  Country: CA (occurrence: CA)
  Receive Date: 20130103
  Receipt Date: 20130410
  Transmission Date: 20140414
  Serious: No
  Sender: FDA-Public Use
  Company Number: CA-UCBSA-074177

PATIENT
  Age: 60 Year
  Sex: Female
  Weight: 68 kg

DRUGS (6)
  1. CIMZIA [Suspect]
     Indication: RHEUMATOID ARTHRITIS
     Route: 058
     Dates: start: 20121115, end: 201212
  2. CIMZIA [Suspect]
     Indication: RHEUMATOID ARTHRITIS
     Route: 058
  3. METHOTREXATE [Concomitant]
     Indication: RHEUMATOID ARTHRITIS
     Dosage: 20-25 MG
     Dates: start: 20101117
  4. METFORMIN [Concomitant]
     Route: 048
  5. PAROSYN [Concomitant]
  6. PREDNISONE [Concomitant]
     Route: 048

REACTIONS (2)
  - VIIth nerve paralysis [Recovered/Resolved]
  - Upper respiratory tract infection [Recovered/Resolved]
